FAERS Safety Report 15643251 (Version 2)
Quarter: 2019Q1

REPORT INFORMATION
  Report Type: Spontaneous
  Country: US (occurrence: US)
  Receive Date: 20181121
  Receipt Date: 20190329
  Transmission Date: 20190417
  Serious: Yes (Other)
  Sender: FDA-Public Use
  Company Number: US-SA-2018SA317056

PATIENT
  Age: 62 Year
  Sex: Female
  Weight: 72.57 kg

DRUGS (4)
  1. TAXOTERE [Suspect]
     Active Substance: DOCETAXEL
     Indication: BREAST CANCER FEMALE
     Dosage: UNK UNK, QCY
     Route: 042
     Dates: start: 20100619, end: 20100619
  2. NEOSAR [Concomitant]
     Active Substance: CYCLOPHOSPHAMIDE
     Dosage: UNK
  3. CYTOXAN [Concomitant]
     Active Substance: CYCLOPHOSPHAMIDE
     Dosage: UNK UNK, UNK
  4. TAXOTERE [Suspect]
     Active Substance: DOCETAXEL
     Dosage: UNK UNK, QCY
     Route: 042
     Dates: start: 20100821, end: 20100821

REACTIONS (3)
  - Alopecia [Not Recovered/Not Resolved]
  - Emotional distress [Unknown]
  - Psychological trauma [Unknown]
